FAERS Safety Report 4389724-2 (Version None)
Quarter: 2004Q2

REPORT INFORMATION
  Report Type: 
  Country: None (occurrence: None)
  Receive Date: 20040629
  Receipt Date: 20030725
  Transmission Date: 20050107
  Serious: Yes (Hospitalization)
  Sender: FDA-Public Use
  Company Number: US-JNJFOC-20030706777

PATIENT
  Age: 56 Year
  Sex: Male

DRUGS (7)
  1. DURAGESIC [Suspect]
     Dosage: 150 UG/HR, 1 IN 72 HOUR, TRANSDERMAL; SEE IMAGE
     Route: 062
     Dates: start: 20030401, end: 20030603
  2. DURAGESIC [Suspect]
     Dosage: 150 UG/HR, 1 IN 72 HOUR, TRANSDERMAL; SEE IMAGE
     Route: 062
     Dates: start: 20030603, end: 20030702
  3. DURAGESIC [Suspect]
     Dosage: 150 UG/HR, 1 IN 72 HOUR, TRANSDERMAL; SEE IMAGE
     Route: 062
     Dates: start: 20030702, end: 20030718
  4. DURAGESIC [Suspect]
     Dosage: 150 UG/HR, 1 IN 72 HOUR, TRANSDERMAL; SEE IMAGE
     Route: 062
     Dates: start: 20030718, end: 20030722
  5. DURAGESIC [Suspect]
     Dosage: 150 UG/HR, 1 IN 72 HOUR, TRANSDERMAL; SEE IMAGE
     Route: 062
     Dates: start: 20030725
  6. AMBIEN [Concomitant]
  7. KLONOPIN [Concomitant]

REACTIONS (5)
  - DRUG WITHDRAWAL SYNDROME [None]
  - FALL [None]
  - FEELING OF BODY TEMPERATURE CHANGE [None]
  - SYNCOPE [None]
  - WEIGHT DECREASED [None]
